FAERS Safety Report 9407804 (Version 1)
Quarter: 2013Q3

REPORT INFORMATION
  Report Type: Spontaneous
  Country: US (occurrence: None)
  Receive Date: 20130717
  Receipt Date: 20130717
  Transmission Date: 20140515
  Serious: No
  Sender: FDA-Public Use
  Company Number: None

PATIENT
  Age: 52 Year
  Sex: Female

DRUGS (7)
  1. METHYLPHENID [Suspect]
     Indication: ATTENTION DEFICIT/HYPERACTIVITY DISORDER
     Route: 048
     Dates: start: 20130618
  2. FLUOXETINE [Concomitant]
  3. ER METHYLPHENIDATE [Concomitant]
  4. LEVOTHYROXINE [Concomitant]
  5. SPRINTEC [Concomitant]
  6. TRAZODONE [Concomitant]
  7. SIMVASTATIN [Concomitant]

REACTIONS (5)
  - Daydreaming [None]
  - Impaired work ability [None]
  - Vision blurred [None]
  - Drug ineffective [None]
  - Product substitution issue [None]
